FAERS Safety Report 7349537-6 (Version None)
Quarter: 2011Q1

REPORT INFORMATION
  Report Type: 
  Country: None (occurrence: None)
  Receive Date: 20110314
  Receipt Date: 20110304
  Transmission Date: 20110831
  Serious: Yes (Hospitalization)
  Sender: FDA-Public Use
  Company Number: US-CELGENEUS-163-CCAZA-11030903

PATIENT
  Age: 42 Year
  Sex: Male
  Weight: 73.9 kg

DRUGS (15)
  1. ALLOPURINOL [Concomitant]
     Route: 065
  2. ASPIRIN [Concomitant]
     Route: 065
  3. CAPTOPRIL [Concomitant]
     Route: 065
  4. CYCLOPHOSPHAMIDE [Suspect]
     Dosage: 300 MILLIGRAM/SQ. METER
     Route: 065
     Dates: start: 20101015, end: 20110204
  5. COLACE [Concomitant]
     Route: 065
  6. FERROUS SULFATE TAB [Concomitant]
     Route: 065
  7. VIDAZA [Suspect]
     Dosage: 25 MILLIGRAM/SQ. METER
     Route: 065
     Dates: start: 20101015, end: 20110204
  8. FAMCYCLOVIR [Concomitant]
     Route: 065
  9. NITROGLYCERIN [Concomitant]
     Route: 065
  10. VINCRISTINE [Suspect]
     Dosage: 1.4 MILLIGRAM/SQ. METER
     Route: 065
     Dates: start: 20101015, end: 20110204
  11. IMMUNE GLOBULIN INTRAVENOUS (HUMAN) [Concomitant]
     Route: 065
     Dates: start: 20110301
  12. LEVOFLOXACIN [Concomitant]
     Route: 065
  13. PLAVIX [Concomitant]
     Route: 065
  14. RITUXAN [Suspect]
     Dosage: 375 MILLIGRAM/SQ. METER
     Route: 065
     Dates: start: 20101015, end: 20110204
  15. PROTONIX [Concomitant]
     Route: 065

REACTIONS (1)
  - ACUTE MYOCARDIAL INFARCTION [None]
